FAERS Safety Report 18604178 (Version 1)
Quarter: 2020Q4

REPORT INFORMATION
  Report Type: Spontaneous
  Country: AU (occurrence: AU)
  Receive Date: 20201211
  Receipt Date: 20201211
  Transmission Date: 20210114
  Serious: Yes (Hospitalization, Other)
  Sender: FDA-Public Use
  Company Number: AU-SA-2020SA348702

PATIENT

DRUGS (8)
  1. RIFAMPICIN [Suspect]
     Active Substance: RIFAMPIN
     Indication: MENINGITIS TUBERCULOUS
     Dosage: 15 MG/KG, QD
  2. DEXAMETHASONE. [Suspect]
     Active Substance: DEXAMETHASONE
     Dosage: WEANED OVER 8 WEEKS
  3. ISONIAZID. [Suspect]
     Active Substance: ISONIAZID
     Indication: MENINGITIS TUBERCULOUS
     Dosage: 15 MG/KG, QD
  4. PYRAZINAMIDE. [Suspect]
     Active Substance: PYRAZINAMIDE
     Indication: MENINGITIS TUBERCULOUS
     Dosage: 35 MG/KG, QD
  5. DEXAMETHASONE. [Suspect]
     Active Substance: DEXAMETHASONE
     Indication: MENINGITIS TUBERCULOUS
     Dosage: 0.15 MG/KG, Q6H
     Route: 042
  6. DEXAMETHASONE. [Suspect]
     Active Substance: DEXAMETHASONE
     Dosage: 0.15 MG/KG, Q8H
     Route: 042
  7. MOXIFLOXACIN HYDROCHLORIDE. [Suspect]
     Active Substance: MOXIFLOXACIN HYDROCHLORIDE
     Indication: MENINGITIS TUBERCULOUS
     Dosage: 10 MG/KG, QD
  8. CEFTRIAXONE. [Concomitant]
     Active Substance: CEFTRIAXONE
     Dosage: UNK
     Route: 042

REACTIONS (9)
  - Arachnoiditis [Recovered/Resolved]
  - Inflammation [Recovered/Resolved]
  - Cushingoid [Unknown]
  - Nocturia [Unknown]
  - Off label use [Unknown]
  - Headache [Recovered/Resolved]
  - Visual pathway disorder [Recovered/Resolved]
  - Eye pain [Recovered/Resolved]
  - Paradoxical drug reaction [Recovered/Resolved]
